FAERS Safety Report 4961847-6 (Version None)
Quarter: 2006Q2

REPORT INFORMATION
  Report Type: 
  Country: None (occurrence: None)
  Receive Date: 20060404
  Receipt Date: 20060323
  Transmission Date: 20061013
  Serious: Yes (Other)
  Sender: FDA-Public Use
  Company Number: US-BRISTOL-MYERS SQUIBB COMPANY-13324843

PATIENT
  Sex: Female

DRUGS (7)
  1. TAXOL [Suspect]
     Indication: PERITONEAL CARCINOMA
  2. CISPLATIN [Suspect]
     Indication: PERITONEAL CARCINOMA
  3. LANTUS [Concomitant]
  4. HUMALOG [Concomitant]
  5. LOPRESSOR [Concomitant]
  6. SYNTHROID [Concomitant]
  7. KYTRIL [Concomitant]

REACTIONS (1)
  - HYPOGLYCAEMIA [None]
